FAERS Safety Report 7519225-1 (Version None)
Quarter: 2011Q2

REPORT INFORMATION
  Report Type: 
  Country: None (occurrence: None)
  Receive Date: 20110602
  Receipt Date: 20110210
  Transmission Date: 20111010
  Serious: No
  Sender: FDA-Public Use
  Company Number: US-BRISTOL-MYERS SQUIBB COMPANY-15544109

PATIENT
  Age: 38 Year
  Sex: Male
  Weight: 135 kg

DRUGS (4)
  1. GLIMEPIRIDE [Concomitant]
  2. ANTARA (MICRONIZED) [Concomitant]
  3. AZOR [Concomitant]
     Indication: HYPERTENSION
  4. KOMBIGLYZE XR [Suspect]
     Indication: DIABETES MELLITUS
     Dosage: 1 DF = KOMBLIGYZE XR 5/1000 UNITS NOS

REACTIONS (6)
  - ABDOMINAL PAIN UPPER [None]
  - VISION BLURRED [None]
  - BACK PAIN [None]
  - TREMOR [None]
  - PERIPHERAL COLDNESS [None]
  - ASTHENIA [None]
